FAERS Safety Report 21331026 (Version 2)
Quarter: 2024Q3

REPORT INFORMATION
  Report Type: Spontaneous
  Country: JP (occurrence: JP)
  Receive Date: 20220914
  Receipt Date: 20240826
  Transmission Date: 20241016
  Serious: Yes (Other)
  Sender: TAKEDA
  Company Number: JP-TAKEDA-2022TJP072600

PATIENT
  Age: 35 Year
  Sex: Male

DRUGS (1)
  1. ALUNBRIG [Suspect]
     Active Substance: BRIGATINIB
     Indication: Non-small cell lung cancer
     Dosage: UNK, QD
     Route: 048

REACTIONS (2)
  - Metastases to meninges [Recovered/Resolved]
  - Non-small cell lung cancer [Unknown]
